FAERS Safety Report 5419360-8 (Version None)
Quarter: 2007Q3

REPORT INFORMATION
  Report Type: 
  Country: None (occurrence: None)
  Receive Date: 20070815
  Receipt Date: 20070802
  Transmission Date: 20080115
  Serious: Yes (Hospitalization)
  Sender: FDA-Public Use
  Company Number: MEDI-0005916

PATIENT
  Age: 60 Year
  Sex: Female

DRUGS (9)
  1. ETHYOL [Suspect]
     Indication: RADIOTHERAPY
     Dosage: 500 MG, 1 IN 1 D, SUBCUTANEOUS
     Route: 058
     Dates: start: 20070706, end: 20070716
  2. ETHYOL [Suspect]
     Indication: RADIOTHERAPY
     Dosage: 500 MG, 1 IN 1 D, SUBCUTANEOUS
     Route: 058
     Dates: start: 20070716, end: 20070717
  3. RADIATION THERAPY [Concomitant]
  4. COMPAZINE [Concomitant]
  5. ACETAMINOPHEN AND OXYCODONE HCL [Concomitant]
  6. METOPROLOL TARTRATE [Concomitant]
  7. POTASSIUM CHLORIDE [Concomitant]
  8. PRILOSEC [Concomitant]
  9. HYDROCHLOROTHIAZIDE [Concomitant]

REACTIONS (5)
  - DYSPNOEA [None]
  - ELECTROLYTE IMBALANCE [None]
  - PYREXIA [None]
  - RASH GENERALISED [None]
  - TACHYCARDIA [None]
